FAERS Safety Report 5512781-4 (Version None)
Quarter: 2007Q4

REPORT INFORMATION
  Report Type: 
  Country: None (occurrence: None)
  Receive Date: 20071108
  Receipt Date: 20071025
  Transmission Date: 20080405
  Serious: Yes (Hospitalization)
  Sender: FDA-Public Use
  Company Number: 163271ISR

PATIENT
  Age: 54 Year
  Sex: Male

DRUGS (1)
  1. METRONIDAZOLE [Suspect]
     Indication: ABSCESS JAW
     Dosage: 600 MG (200 MG,3 IN 1 D) ORAL
     Route: 048
     Dates: start: 20070709, end: 20070716

REACTIONS (3)
  - CIRCADIAN RHYTHM SLEEP DISORDER [None]
  - LETHARGY [None]
  - MANIA [None]
